FAERS Safety Report 14712793 (Version 1)
Quarter: 2018Q2

REPORT INFORMATION
  Report Type: Spontaneous
  Country: US (occurrence: US)
  Receive Date: 20180404
  Receipt Date: 20180404
  Transmission Date: 20180711
  Serious: No
  Sender: FDA-Public Use
  Company Number: US-TEVA-2018-US-873463

PATIENT
  Sex: Male

DRUGS (1)
  1. COPAXONE [Suspect]
     Active Substance: GLATIRAMER ACETATE
     Dosage: FORM STRENGTH: UNKNOWN, TAKES DAILY
     Route: 058

REACTIONS (4)
  - Adverse event [Unknown]
  - Swelling [Unknown]
  - Pain [Unknown]
  - Immediate post-injection reaction [Unknown]
